FAERS Safety Report 5928555-6 (Version None)
Quarter: 2008Q4

REPORT INFORMATION
  Report Type: 
  Country: None (occurrence: None)
  Receive Date: 20081023
  Receipt Date: 20081014
  Transmission Date: 20090506
  Serious: Yes (Life-Threatening, Hospitalization)
  Sender: FDA-Public Use
  Company Number: BE-WATSON-2008-06130

PATIENT
  Age: 60 Year
  Sex: Male

DRUGS (5)
  1. CHLORDIAZEPOXIDE/AMITRIPTYLINE HCL (UNKNOWN STRENGTH) (WATSON) [Suspect]
     Indication: NEURALGIA
     Dosage: 50MG DAILY
  2. DEXTROMETHORPHAN [Suspect]
     Indication: NASOPHARYNGITIS
     Dosage: 15 MG/ 5ML THREE TIMES DAILY
  3. HYDROMORPHONE HCL [Concomitant]
     Indication: NEUROPATHY PERIPHERAL
     Dosage: UNK
  4. GABAPENTIN [Concomitant]
     Indication: NEUROPATHY PERIPHERAL
     Dosage: UNK
  5. CLONAZEPAM [Concomitant]
     Indication: NEUROPATHY PERIPHERAL

REACTIONS (2)
  - POISONING [None]
  - POTENTIATING DRUG INTERACTION [None]
